FAERS Safety Report 6415881-X (Version None)
Quarter: 2009Q4

REPORT INFORMATION
  Report Type: 
  Country: None (occurrence: None)
  Receive Date: 20091027
  Receipt Date: 20091015
  Transmission Date: 20100525
  Serious: Yes (Death, Hospitalization, Other)
  Sender: FDA-Public Use
  Company Number: JP-PFIZER INC-2009262327

PATIENT
  Age: 47 Year

DRUGS (12)
  1. SUNITINIB MALATE [Suspect]
     Indication: RENAL CELL CARCINOMA
     Dosage: 37.5 MG, 1X/DAY
     Route: 048
     Dates: start: 20090807, end: 20090816
  2. ROPION [Concomitant]
     Route: 042
     Dates: end: 20090902
  3. BIOFERMIN R [Concomitant]
     Route: 048
     Dates: end: 20090817
  4. CALCIUM POLYSTYRENE SULFONATE [Concomitant]
     Dosage: UNK
     Route: 048
     Dates: end: 20090817
  5. RENIVACE [Concomitant]
     Route: 048
     Dates: end: 20090817
  6. CONIEL [Concomitant]
     Route: 048
     Dates: end: 20090817
  7. ACECOL [Concomitant]
     Route: 048
     Dates: end: 20090817
  8. DECADRON [Concomitant]
     Route: 048
     Dates: end: 20090817
  9. LANSOPRAZOLE [Concomitant]
     Route: 048
     Dates: end: 20090817
  10. VOLTAREN [Concomitant]
     Route: 048
     Dates: end: 20090817
  11. RENAGEL [Concomitant]
     Route: 048
     Dates: end: 20090817
  12. RIZABEN [Concomitant]
     Route: 048
     Dates: end: 20090817

REACTIONS (6)
  - ASCITES [None]
  - DISSEMINATED INTRAVASCULAR COAGULATION [None]
  - HYPERTENSION [None]
  - HYPOTHYROIDISM [None]
  - ILEUS [None]
  - OESOPHAGITIS [None]
